FAERS Safety Report 5933661-6 (Version None)
Quarter: 2008Q4

REPORT INFORMATION
  Report Type: 
  Country: None (occurrence: None)
  Receive Date: 20081024
  Receipt Date: 20081009
  Transmission Date: 20090506
  Serious: Yes (Death, Life-Threatening, Other)
  Sender: FDA-Public Use
  Company Number: 2008BI027398

PATIENT
  Sex: Male

DRUGS (15)
  1. ZEVALIN [Suspect]
     Indication: B-CELL LYMPHOMA
     Dosage: 0.4 MCI/KG;1X;IV
     Route: 042
  2. RITUXIMAB [Concomitant]
  3. FLUDARABINE PHOSPHATE [Concomitant]
  4. MELPHALAN [Concomitant]
  5. FRAXIPARINE [Concomitant]
  6. OMEPRAZOLE [Concomitant]
  7. METHYLPREDNISOLONE 16MG TAB [Concomitant]
  8. GANCICLOVIR [Concomitant]
  9. AMBISOME [Concomitant]
  10. PIPERACILLIN AND TAZOBACTAM [Concomitant]
  11. TETRACYCLINE [Concomitant]
  12. NEUPOGEN [Concomitant]
  13. TRIMETHOPRIM + SULFAMETHOXAZOLE [Concomitant]
  14. BUDESONIDE [Concomitant]
  15. TACROLIMUS [Concomitant]

REACTIONS (9)
  - ASPERGILLOSIS [None]
  - CYTOMEGALOVIRUS COLITIS [None]
  - GRAFT VERSUS HOST DISEASE [None]
  - HYPOXIA [None]
  - MULTI-ORGAN FAILURE [None]
  - NEUTROPENIA [None]
  - SEPTIC SHOCK [None]
  - STEM CELL TRANSPLANT [None]
  - TACHYCARDIA [None]
